FAERS Safety Report 13155447 (Version 1)
Quarter: 2017Q1

REPORT INFORMATION
  Report Type: Spontaneous
  Country: US (occurrence: US)
  Receive Date: 20170126
  Receipt Date: 20170126
  Transmission Date: 20170428
  Serious: Yes (Hospitalization)
  Sender: FDA-Public Use
  Company Number: US-RARE DISEASE THERAPEUTICS, INC.-1062394

PATIENT
  Age: 9 Month
  Sex: Female
  Weight: 3 kg

DRUGS (6)
  1. ENFAMIL NATALINS RX [Concomitant]
  2. CYSTADANE [Suspect]
     Active Substance: BETAINE
     Indication: METHYLMALONIC ACIDURIA
     Dates: start: 20160527
  3. VITAMIN D [Concomitant]
     Active Substance: CHOLECALCIFEROL
  4. LEUCOVORIN. [Concomitant]
     Active Substance: LEUCOVORIN
  5. HYDROXOCOBALAMIN [Concomitant]
     Active Substance: HYDROXOCOBALAMIN
  6. LEVOCARNITINE. [Concomitant]
     Active Substance: LEVOCARNITINE

REACTIONS (3)
  - Influenza [Recovered/Resolved]
  - Off label use [Unknown]
  - Overdose [Unknown]

NARRATIVE: CASE EVENT DATE: 20160527
